FAERS Safety Report 7875046-1 (Version None)
Quarter: 2011Q4

REPORT INFORMATION
  Report Type: 
  Country: None (occurrence: None)
  Receive Date: 20111031
  Receipt Date: 20111024
  Transmission Date: 20120403
  Serious: Yes (Death)
  Sender: FDA-Public Use
  Company Number: US-BRISTOL-MYERS SQUIBB COMPANY-16189078

PATIENT
  Age: 73 Year
  Sex: Female
  Weight: 96 kg

DRUGS (4)
  1. CELECOXIB [Suspect]
     Indication: NON-SMALL CELL LUNG CANCER
     Dosage: DAYS 1-21 FOR CYCLE 1-6, TOTAL= 3600MG
     Route: 048
     Dates: start: 20110921, end: 20110925
  2. BLINDED: PLACEBO [Suspect]
     Indication: NON-SMALL CELL LUNG CANCER
     Route: 048
     Dates: start: 20110921, end: 20110925
  3. CARBOPLATIN [Suspect]
     Indication: NON-SMALL CELL LUNG CANCER
     Dosage: 1 DF= AUC= 5.5 ON DAY 1, 480MG
     Route: 042
     Dates: start: 20110921, end: 20110921
  4. GEMCITABINE [Suspect]
     Indication: NON-SMALL CELL LUNG CANCER
     Dosage: ON DAYS 1,8, TOTAL= 2140MG
     Route: 042
     Dates: start: 20110921, end: 20110921

REACTIONS (2)
  - MYOCARDIAL INFARCTION [None]
  - PULMONARY EMBOLISM [None]
